FAERS Safety Report 23036560 (Version 2)
Quarter: 2023Q4

REPORT INFORMATION
  Report Type: Spontaneous
  Country: US (occurrence: US)
  Receive Date: 20231006
  Receipt Date: 20231106
  Transmission Date: 20240109
  Serious: Yes (Other)
  Sender: FDA-Public Use
  Company Number: US-CIPLA LTD.-2023US05876

PATIENT

DRUGS (6)
  1. ALBUTEROL [Suspect]
     Active Substance: ALBUTEROL
     Indication: Wheezing
     Dosage: 2 PUFFS (180 MICROGRAM), FOR EVERY 6 HOURS OR AS NEEDED
     Dates: start: 20230918
  2. ALBUTEROL [Suspect]
     Active Substance: ALBUTEROL
     Indication: Cough
  3. ALBUTEROL [Suspect]
     Active Substance: ALBUTEROL
     Indication: COVID-19
  4. FEBUXOSTAT [Concomitant]
     Active Substance: FEBUXOSTAT
     Indication: Neuropathy peripheral
     Dosage: 40 MILLIGRAM, QD
     Route: 065
  5. LISINOPRIL [Concomitant]
     Active Substance: LISINOPRIL
     Indication: Blood pressure abnormal
     Dosage: 40 MILLIGRAM, QD
     Route: 065
  6. GABAPENTIN [Concomitant]
     Active Substance: GABAPENTIN
     Indication: Neuropathy peripheral
     Dosage: 300 MILLIGRAM, BID
     Route: 065

REACTIONS (4)
  - Pulmonary congestion [Not Recovered/Not Resolved]
  - Device delivery system issue [Unknown]
  - Off label use [Unknown]
  - Wrong technique in device usage process [Unknown]

NARRATIVE: CASE EVENT DATE: 20230918
